FAERS Safety Report 4955008-4 (Version None)
Quarter: 2006Q1

REPORT INFORMATION
  Report Type: 
  Country: None (occurrence: None)
  Receive Date: 20060322
  Receipt Date: 20060310
  Transmission Date: 20060701
  Serious: Yes (Disabling)
  Sender: FDA-Public Use
  Company Number: 200611253BWH

PATIENT
  Sex: 0

DRUGS (1)
  1. AVELOX [Suspect]
     Dosage: 400 MG, ORAL
     Route: 048

REACTIONS (1)
  - NEUROPATHY [None]
